FAERS Safety Report 9263247 (Version 1)
Quarter: 2013Q2

REPORT INFORMATION
  Report Type: Report from Study
  Country: US (occurrence: US)
  Receive Date: 20130430
  Receipt Date: 20130430
  Transmission Date: 20140414
  Serious: No
  Sender: FDA-Public Use
  Company Number: US-ACTELION-A-NJ2013-82328

PATIENT
  Age: 29 Year
  Sex: Female

DRUGS (2)
  1. TRACLEER [Suspect]
     Indication: COR PULMONALE CHRONIC
     Route: 048
  2. ADCIRCA [Concomitant]

REACTIONS (1)
  - Pregnancy [Unknown]
